FAERS Safety Report 8592489-1 (Version None)
Quarter: 2012Q3

REPORT INFORMATION
  Report Type: 
  Country: None (occurrence: None)
  Receive Date: 20120814
  Receipt Date: 20120808
  Transmission Date: 20120928
  Serious: Yes (Hospitalization)
  Sender: FDA-Public Use
  Company Number: JP-009507513-1208JPN003566

PATIENT

DRUGS (10)
  1. SELBEX [Concomitant]
     Dosage: 50 MG/DAY
     Route: 048
     Dates: start: 20120314
  2. ALLEGRA [Concomitant]
     Indication: RASH
     Dosage: 120 MG, QD
  3. LOXONIN [Concomitant]
     Dosage: 60 MG/DAY
     Route: 048
     Dates: start: 20120314
  4. TELAVIC [Suspect]
     Dosage: CUMULATIVE DOSE: 9000 MILLIGRAM
     Route: 048
     Dates: start: 20120317, end: 20120629
  5. REBETOL [Suspect]
     Indication: HEPATITIS C
     Dosage: CUMULATIVE DOSE: 1600 MILLIGRAM
     Route: 048
     Dates: start: 20120313, end: 20120411
  6. ANTEBATE [Concomitant]
     Indication: RASH
     Dosage: 10 G, PRN
     Dates: start: 20120316
  7. URALYT [Concomitant]
     Dosage: 3 DF, QD
     Route: 048
     Dates: start: 20120317
  8. PEG-INTRON [Suspect]
     Indication: HEPATITIS C
     Dosage: 1.5 MICROGRAM PER KILOGRAM, WEEKLY
     Route: 058
     Dates: start: 20120313
  9. TELAVIC [Suspect]
     Indication: HEPATITIS C
     Dosage: CUMULATIVE DOSE: 9000 MILLIGRAM
     Route: 048
     Dates: start: 20120313, end: 20120316
  10. URINORM [Concomitant]
     Dosage: 50 MG, UNK
     Route: 048
     Dates: start: 20120317

REACTIONS (1)
  - PLEURAL EFFUSION [None]
